FAERS Safety Report 5392072-5 (Version None)
Quarter: 2007Q3

REPORT INFORMATION
  Report Type: 
  Country: None (occurrence: None)
  Receive Date: 20070720
  Receipt Date: 20070717
  Transmission Date: 20080115
  Serious: Yes (Hospitalization)
  Sender: FDA-Public Use
  Company Number: US-BAYER-200711766BCC

PATIENT
  Age: 16 Year
  Sex: Female
  Weight: 48 kg

DRUGS (2)
  1. ALEVE [Suspect]
     Indication: DEPRESSION
     Dosage: UNIT DOSE: 220 MG
     Route: 048
     Dates: start: 20070601
  2. INHALER [Concomitant]
     Route: 048

REACTIONS (3)
  - DIZZINESS POSTURAL [None]
  - FEELING HOT [None]
  - INTENTIONAL OVERDOSE [None]
